FAERS Safety Report 4780334-1 (Version None)
Quarter: 2005Q3

REPORT INFORMATION
  Report Type: 
  Country: None (occurrence: None)
  Receive Date: 20050926
  Receipt Date: 20050914
  Transmission Date: 20060218
  Serious: Yes (Disabling)
  Sender: FDA-Public Use
  Company Number: 2005121508

PATIENT
  Age: 58 Year
  Sex: Male
  Weight: 54.4316 kg

DRUGS (10)
  1. NEURONTIN [Suspect]
     Indication: NERVE DEGENERATION
     Dosage: 600 MG (300 MG, 2 IN 1 D), ORAL
     Route: 048
     Dates: start: 20020827
  2. NEURONTIN [Suspect]
     Indication: NEUROPATHY PERIPHERAL
     Dosage: 600 MG (300 MG, 2 IN 1 D), ORAL
     Route: 048
     Dates: start: 20020827
  3. LUMIGAN [Concomitant]
  4. ALL OTHER THERAPEUTIC PRODUCTS (ALL OTHER THERAPEUTIC PRODUCTS) [Concomitant]
  5. ZYPREXA [Concomitant]
  6. CADUET [Concomitant]
  7. LORTAB [Concomitant]
  8. LEVITRA [Concomitant]
  9. NAMENDA [Concomitant]
  10. TIMOLOL MALEATE [Concomitant]

REACTIONS (5)
  - BLOOD CHOLESTEROL INCREASED [None]
  - INSOMNIA [None]
  - LOSS OF EMPLOYMENT [None]
  - MENTAL DISORDER [None]
  - TREATMENT NONCOMPLIANCE [None]
